FAERS Safety Report 24465000 (Version 1)
Quarter: 2024Q4

REPORT INFORMATION
  Report Type: Report from Study
  Country: US (occurrence: US)
  Receive Date: 20241018
  Receipt Date: 20241018
  Transmission Date: 20250115
  Serious: No
  Sender: ROCHE
  Company Number: US-ROCHE-3504379

PATIENT
  Age: 64 Year
  Sex: Female
  Weight: 115.67 kg

DRUGS (5)
  1. XOLAIR [Suspect]
     Active Substance: OMALIZUMAB
     Indication: Urticaria
     Dosage: INJECT 2 SYRINGES (300MG)?2 150MG PRE-FILLED SYRINGES EVERY 2 WEEKS
     Route: 058
     Dates: start: 202302
  2. XOLAIR [Suspect]
     Active Substance: OMALIZUMAB
     Indication: Chronic spontaneous urticaria
     Dosage: 2 150MG PRE-FILLED SYRINGES ONCE A MONTH
     Route: 058
     Dates: start: 2020
  3. XOLAIR [Suspect]
     Active Substance: OMALIZUMAB
     Dosage: 2 150MG PRE-FILLED SYRINGES ONCE A MONTH
     Route: 058
  4. LEVOTHYROXINE [Concomitant]
     Active Substance: LEVOTHYROXINE
     Route: 048
  5. METOPROLOL [Concomitant]
     Active Substance: METOPROLOL
     Indication: Blood pressure measurement
     Route: 048
     Dates: start: 2023

REACTIONS (4)
  - Device defective [Unknown]
  - Physical product label issue [Unknown]
  - Off label use [Unknown]
  - Hypertension [Recovering/Resolving]

NARRATIVE: CASE EVENT DATE: 20230101
